FAERS Safety Report 9980113 (Version 1)
Quarter: 2014Q1

REPORT INFORMATION
  Report Type: Report from Study
  Country: US (occurrence: US)
  Receive Date: 20140307
  Receipt Date: 20140307
  Transmission Date: 20141002
  Serious: No
  Sender: FDA-Public Use
  Company Number: US-ABBVIE-13P-163-1174580-00

PATIENT
  Age: 45 Year
  Sex: Female

DRUGS (4)
  1. HUMIRA [Suspect]
     Indication: CROHN^S DISEASE
     Dates: start: 20130915
  2. POTASSIUM [Concomitant]
     Indication: MINERAL SUPPLEMENTATION
  3. TRAMADOL [Concomitant]
     Indication: ABDOMINAL PAIN
  4. TRAMADOL [Concomitant]
     Indication: PROCTALGIA

REACTIONS (2)
  - Drug dose omission [Recovered/Resolved]
  - Death of relative [Recovered/Resolved]
